FAERS Safety Report 13860169 (Version 2)
Quarter: 2017Q3

REPORT INFORMATION
  Report Type: Spontaneous
  Country: US (occurrence: US)
  Receive Date: 20170811
  Receipt Date: 20170816
  Transmission Date: 20171127
  Serious: No
  Sender: FDA-Public Use
  Company Number: US-B.I. PHARMACEUTICALS,INC./RIDGEFIELD-2017-BI-043925

PATIENT
  Age: 69 Year
  Sex: Female

DRUGS (12)
  1. FOLIC ACID. [Concomitant]
     Active Substance: FOLIC ACID
     Indication: PRODUCT USED FOR UNKNOWN INDICATION
     Route: 065
  2. OXYBUTYNIN [Concomitant]
     Active Substance: OXYBUTYNIN
     Indication: HYPERTONIC BLADDER
     Dosage: TWICE DAILY;  FORM STRENGTH: 10MG; FORMULATION: TABLET
     Route: 048
  3. AMBIEN [Concomitant]
     Active Substance: ZOLPIDEM TARTRATE
     Indication: SLEEP DISORDER
     Dosage: ONCE NIGHTLY;  FORM STRENGTH: 5MG; FORMULATION: TABLET
     Route: 048
  4. PRADAXA [Suspect]
     Active Substance: DABIGATRAN ETEXILATE MESYLATE
     Indication: ATRIAL FIBRILLATION
  5. METHOTREXATE. [Concomitant]
     Active Substance: METHOTREXATE
     Indication: ARTHRITIS
     Dosage: 8 TABLETS ON FRIDAY;  FORM STRENGTH: 2.5MG; FORMULATION: TABLET
     Route: 048
  6. ASPIRIN. [Concomitant]
     Active Substance: ASPIRIN
     Indication: CARDIOVASCULAR EVENT PROPHYLAXIS
     Dosage: ONCE DAILY;  FORM STRENGTH: 81MG; FORMULATION: TABLET
     Route: 048
  7. OMEPRAZOLE. [Concomitant]
     Active Substance: OMEPRAZOLE
     Indication: HYPERCHLORHYDRIA
     Dosage: ONCE DAILY;  FORM STRENGTH: 20MG; FORMULATION: TABLET
     Route: 048
  8. METOPROLOL. [Concomitant]
     Active Substance: METOPROLOL
     Indication: HYPERTENSION
     Dosage: TWICE DAILY;  FORM STRENGTH: 25MG; FORMULATION: TABLET
     Route: 048
  9. PRAVASTATIN. [Concomitant]
     Active Substance: PRAVASTATIN
     Indication: BLOOD CHOLESTEROL INCREASED
     Dosage: ONCE DAILY;  FORM STRENGTH: 40MG; FORMULATION: TABLET
     Route: 048
  10. TRAMADOL. [Concomitant]
     Active Substance: TRAMADOL
     Indication: PAIN
     Dosage: THREE TIMES DAILY;  FORM STRENGTH: 50MG; FORMULATION: TABLET
     Route: 048
  11. PRADAXA [Suspect]
     Active Substance: DABIGATRAN ETEXILATE MESYLATE
     Indication: CEREBROVASCULAR ACCIDENT PROPHYLAXIS
     Dosage: TWICE DAILY;  FORM STRENGTH: 150 MG; FORMULATION: CAPSULE? ADMINISTRATION CORRECT? YES ?ACTION(S) TA
     Route: 048
     Dates: start: 20170101
  12. PREDNISONE. [Concomitant]
     Active Substance: PREDNISONE
     Indication: ARTHRITIS
     Dosage: ONCE DAILY;  FORM STRENGTH: 5MG; FORMULATION: TABLET
     Route: 048

REACTIONS (2)
  - Blood pressure increased [Recovered/Resolved]
  - Carpal tunnel syndrome [Unknown]

NARRATIVE: CASE EVENT DATE: 20170607
